FAERS Safety Report 24092680 (Version 1)
Quarter: 2024Q3

REPORT INFORMATION
  Report Type: Spontaneous
  Country: CA (occurrence: CA)
  Receive Date: 20240715
  Receipt Date: 20240715
  Transmission Date: 20241016
  Serious: Yes (Other)
  Sender: ORGANON
  Company Number: CA-ORGANON-O2407CAN001259

PATIENT
  Age: 36 Year
  Sex: Female
  Weight: 99.79 kg

DRUGS (1)
  1. NEXPLANON [Suspect]
     Active Substance: ETONOGESTREL
     Indication: Contraception
     Dosage: 68 MILLIGRAMS, 1 IMPLANT
     Route: 058

REACTIONS (4)
  - Headache [Unknown]
  - Idiopathic intracranial hypertension [Unknown]
  - Papilloedema [Unknown]
  - Vision blurred [Unknown]
